FAERS Safety Report 5793136-4 (Version None)
Quarter: 2008Q2

REPORT INFORMATION
  Report Type: 
  Country: None (occurrence: None)
  Receive Date: 20080627
  Receipt Date: 20080416
  Transmission Date: 20081010
  Serious: No
  Sender: FDA-Public Use
  Company Number: A0721889A

PATIENT
  Age: 11 Year
  Sex: Male
  Weight: 41.4 kg

DRUGS (5)
  1. FLOVENT [Suspect]
     Indication: ASTHMA
     Dosage: 2PUFF TWICE PER DAY
     Route: 055
     Dates: start: 20070801
  2. NASONEX [Concomitant]
     Indication: ASTHMA
     Dosage: 1PUFF PER DAY
     Route: 045
     Dates: start: 20050101, end: 20080401
  3. SINGULAIR [Concomitant]
     Indication: ASTHMA
     Route: 048
     Dates: start: 20050101
  4. ZYRTEC [Concomitant]
     Indication: ASTHMA
     Route: 048
     Dates: start: 20070101
  5. ASTELIN [Concomitant]
     Indication: ASTHMA
     Dosage: 1PUFF TWICE PER DAY
     Route: 045
     Dates: start: 20080101

REACTIONS (1)
  - CUSHINGOID [None]
